FAERS Safety Report 23738028 (Version 1)
Quarter: 2024Q2

REPORT INFORMATION
  Report Type: Spontaneous
  Country: US (occurrence: None)
  Receive Date: 20240411
  Receipt Date: 20240411
  Transmission Date: 20240716
  Serious: Yes (Hospitalization)
  Sender: FDA-Public Use
  Company Number: None

PATIENT
  Age: 55 Year
  Sex: Female

DRUGS (1)
  1. LETROZOLE [Suspect]
     Active Substance: LETROZOLE
     Dosage: FREQUENCY : DAILY;?

REACTIONS (4)
  - Hepatic cancer [None]
  - Therapy interrupted [None]
  - Hepatic enzyme abnormal [None]
  - Impaired work ability [None]

NARRATIVE: CASE EVENT DATE: 20240409
